FAERS Safety Report 9288489 (Version 2)
Quarter: 2013Q2

REPORT INFORMATION
  Report Type: Spontaneous
  Country: FR (occurrence: FR)
  Receive Date: 20130514
  Receipt Date: 20130515
  Transmission Date: 20140414
  Serious: Yes (Other)
  Sender: FDA-Public Use
  Company Number: PHHY2013FR044650

PATIENT
  Age: 30 Year
  Sex: Female

DRUGS (7)
  1. LOXEN [Suspect]
     Indication: PRE-ECLAMPSIA
     Dosage: 2 MG/H
     Route: 042
  2. LOXEN [Suspect]
     Dosage: 3 MG/H
     Route: 042
  3. LOXEN [Suspect]
     Dosage: 2 MG/H
     Route: 042
  4. TRANDATE [Suspect]
     Indication: PRE-ECLAMPSIA
     Dosage: (10 MG/H)
     Route: 042
  5. TRANDATE [Suspect]
     Dosage: (5 MG/H)
  6. CELESTENE [Concomitant]
     Indication: PROPHYLAXIS
     Dosage: 12 MG, UNK
     Route: 030
  7. CELESTENE [Concomitant]
     Dosage: 12 MG, UNK (SECOND DOSE)

REACTIONS (7)
  - HELLP syndrome [Recovering/Resolving]
  - Horner^s syndrome [Recovering/Resolving]
  - Tinnitus [Recovering/Resolving]
  - Carotid artery dissection [Recovered/Resolved]
  - Premature delivery [Unknown]
  - Hypertension [Recovering/Resolving]
  - Maternal exposure during pregnancy [Unknown]
